FAERS Safety Report 6793612-1 (Version None)
Quarter: 2010Q2

REPORT INFORMATION
  Report Type: 
  Country: None (occurrence: None)
  Receive Date: 20100624
  Receipt Date: 20081209
  Transmission Date: 20101027
  Serious: No
  Sender: FDA-Public Use
  Company Number: US-PFIZER INC-2008151499

PATIENT
  Sex: Female
  Weight: 54 kg

DRUGS (1)
  1. DEPO-PROVERA [Suspect]
     Indication: CONTRACEPTION
     Dates: start: 20080301, end: 20081001

REACTIONS (3)
  - METRORRHAGIA [None]
  - PREMENSTRUAL SYNDROME [None]
  - WEIGHT INCREASED [None]
